FAERS Safety Report 7685169-8 (Version None)
Quarter: 2011Q3

REPORT INFORMATION
  Report Type: 
  Country: None (occurrence: None)
  Receive Date: 20110816
  Receipt Date: 20110804
  Transmission Date: 20111222
  Serious: Yes (Other)
  Sender: FDA-Public Use
  Company Number: JP-PFIZER INC-2011174622

PATIENT
  Age: 31 Year
  Sex: Male

DRUGS (8)
  1. VINCRISTINE SULFATE [Suspect]
     Indication: CHEMOTHERAPY
  2. BLEOMYCIN [Suspect]
     Indication: CHEMOTHERAPY
  3. CYCLOPHOSPHAMIDE [Suspect]
     Indication: CHEMOTHERAPY
  4. VINBLASTINE SULFATE [Suspect]
     Indication: CHEMOTHERAPY
  5. EPIRUBICIN HYDROCHLORIDE [Suspect]
     Indication: CHEMOTHERAPY
  6. ONCOVIN [Suspect]
     Indication: CHEMOTHERAPY
  7. METHOTREXATE SODIUM [Suspect]
     Indication: CHEMOTHERAPY
  8. SOLU-MEDROL [Suspect]
     Indication: CHEMOTHERAPY

REACTIONS (2)
  - CRYPTOCOCCOSIS [None]
  - INTERSTITIAL LUNG DISEASE [None]
